FAERS Safety Report 12454589 (Version 1)
Quarter: 2016Q2

REPORT INFORMATION
  Report Type: Spontaneous
  Country: US (occurrence: US)
  Receive Date: 20160610
  Receipt Date: 20160610
  Transmission Date: 20160815
  Serious: No
  Sender: FDA-Public Use
  Company Number: US-009507513-1606USA000433

PATIENT
  Age: 76 Year
  Sex: Female

DRUGS (4)
  1. GLIPIZIDE. [Concomitant]
     Active Substance: GLIPIZIDE
  2. INSULIN [Concomitant]
     Active Substance: INSULIN NOS
  3. JANUMET [Suspect]
     Active Substance: METFORMIN HYDROCHLORIDE\SITAGLIPTIN PHOSPHATE
     Dosage: DOSE: 50/100 MG, TWICE DAILY; STRENGTH REPORTED AS 50 (UNIT NOT REPORTED)
     Route: 048
     Dates: start: 201305, end: 20160508
  4. JANUMET [Suspect]
     Active Substance: METFORMIN HYDROCHLORIDE\SITAGLIPTIN PHOSPHATE
     Dosage: DOSE: 50/100 MG, TWICE DAILY; STRENGTH REPORTED AS 50 (UNIT NOT REPORTED)
     Route: 048

REACTIONS (2)
  - Drug dose omission [Unknown]
  - Pain [Recovered/Resolved]

NARRATIVE: CASE EVENT DATE: 201305
